FAERS Safety Report 9820669 (Version 1)
Quarter: 2014Q1

REPORT INFORMATION
  Report Type: Report from Study
  Country: US (occurrence: US)
  Receive Date: 20140116
  Receipt Date: 20140116
  Transmission Date: 20141002
  Serious: Yes (Other)
  Sender: FDA-Public Use
  Company Number: US-ASTRAZENECA-2014SE00972

PATIENT
  Age: 66 Year
  Sex: Female
  Weight: 68 kg

DRUGS (9)
  1. CRESTOR [Suspect]
     Indication: BLOOD CHOLESTEROL
     Route: 048
     Dates: end: 20140102
  2. LISINOPRIL HCTZ [Suspect]
     Indication: HYPERTENSION
     Dosage: 20-12.5MG BID
     Route: 048
  3. LISINOPRIL HCTZ [Suspect]
     Indication: BLOOD CHOLESTEROL
     Dosage: 20-12.5MG BID
     Route: 048
  4. TRICOR [Concomitant]
     Indication: BLOOD CHOLESTEROL
  5. TRICOR [Concomitant]
     Indication: HYPERTENSION
  6. METFORMIN [Concomitant]
     Indication: BLOOD GLUCOSE
  7. COREG GENERIC [Concomitant]
     Indication: BLOOD PRESSURE
  8. TEKTURNA [Concomitant]
     Indication: BLOOD PRESSURE
  9. TEKTURNA [Concomitant]
     Indication: BLOOD CHOLESTEROL INCREASED

REACTIONS (3)
  - Arthropathy [Unknown]
  - Diabetes mellitus [Not Recovered/Not Resolved]
  - Drug dose omission [Not Recovered/Not Resolved]
